FAERS Safety Report 16683799 (Version 1)
Quarter: 2019Q3

REPORT INFORMATION
  Report Type: Spontaneous
  Country: GB (occurrence: GB)
  Receive Date: 20190808
  Receipt Date: 20190808
  Transmission Date: 20191004
  Serious: Yes (Other)
  Sender: FDA-Public Use
  Company Number: GB-MYLANLABS-2019M1073637

PATIENT
  Age: 85 Year
  Sex: Female

DRUGS (2)
  1. LETROZOLE. [Suspect]
     Active Substance: LETROZOLE
     Indication: BREAST CANCER
     Dosage: UNK
     Route: 065
  2. KISQALI [Suspect]
     Active Substance: RIBOCICLIB
     Indication: BREAST CANCER
     Dosage: UNK
     Route: 065

REACTIONS (8)
  - Faeces discoloured [Unknown]
  - Neutropenia [Unknown]
  - Breast cancer recurrent [Unknown]
  - Metastases to liver [Unknown]
  - Diarrhoea [Unknown]
  - Fatigue [Unknown]
  - Weight increased [Unknown]
  - Anal incontinence [Unknown]
